FAERS Safety Report 6149827-9 (Version None)
Quarter: 2009Q2

REPORT INFORMATION
  Report Type: 
  Country: None (occurrence: None)
  Receive Date: 20090409
  Receipt Date: 20090409
  Transmission Date: 20091009
  Serious: Yes (Death, Hospitalization)
  Sender: FDA-Public Use
  Company Number: PHHO2005ZA19038

PATIENT
  Sex: Female

DRUGS (12)
  1. CGS 20267 T30748+ [Suspect]
     Indication: BREAST CANCER
     Dosage: 2.5 MG, QD
     Route: 048
     Dates: start: 20020608
  2. TAMOXIFEN CITRATE [Suspect]
     Dosage: 20 MG, QD
  3. GLYCOMIN [Concomitant]
     Indication: DIABETES MELLITUS
     Dates: start: 20000101, end: 20050111
  4. LASIX [Concomitant]
     Indication: DYSPNOEA
  5. ASTHAVENT [Concomitant]
     Indication: ASTHMA
     Dates: start: 19910101, end: 20050111
  6. SEREPAX [Concomitant]
     Indication: INSOMNIA
     Dates: start: 20050111
  7. ENALAPRIL [Concomitant]
     Indication: HYPERTENSION
     Dates: start: 20050113
  8. BEROTEC [Concomitant]
     Indication: ASTHMA
     Dates: start: 20050111
  9. DIGOXIN [Concomitant]
     Indication: ISCHAEMIC CARDIOMYOPATHY
     Dates: start: 20050726
  10. DIAMICRON [Concomitant]
     Indication: DIABETES MELLITUS
     Dates: start: 20050115
  11. DISPRIN [Concomitant]
     Indication: ISCHAEMIC CARDIOMYOPATHY
     Dates: start: 20050111
  12. METFORMIN HCL [Concomitant]
     Indication: DIABETES MELLITUS
     Dates: start: 20050111

REACTIONS (7)
  - ASTHMA [None]
  - CARDIAC FAILURE CONGESTIVE [None]
  - CONCOMITANT DISEASE PROGRESSION [None]
  - DEATH [None]
  - DIABETES MELLITUS [None]
  - DYSPNOEA [None]
  - ISCHAEMIC CARDIOMYOPATHY [None]
